FAERS Safety Report 14674915 (Version 1)
Quarter: 2018Q1

REPORT INFORMATION
  Report Type: Spontaneous
  Country: BR (occurrence: BR)
  Receive Date: 20180323
  Receipt Date: 20180323
  Transmission Date: 20180509
  Serious: Yes (Other)
  Sender: FDA-Public Use
  Company Number: BR-009507513-1803BRA006783

PATIENT
  Age: 62 Year
  Sex: Female
  Weight: 51 kg

DRUGS (8)
  1. CRESTOR [Concomitant]
     Active Substance: ROSUVASTATIN CALCIUM
     Dosage: 20 MG, UNK
     Route: 048
     Dates: start: 20180307
  2. LOTAR [Concomitant]
     Active Substance: AMLODIPINE\LOSARTAN
     Dosage: 1 DF, QD
     Route: 048
     Dates: end: 20180307
  3. SOMALGIN [Concomitant]
     Active Substance: ASPIRIN\DIHYDROXYALUMINUM AMINOACETATE ANHYDROUS\MAGNESIUM CARBONATE
     Dosage: 200 MG, UNK
     Route: 048
     Dates: start: 20180307
  4. JANUMET [Suspect]
     Active Substance: METFORMIN HYDROCHLORIDE\SITAGLIPTIN PHOSPHATE
     Dosage: 2 TABLETS PER DAY
     Route: 048
     Dates: start: 20180307
  5. SOMALGIN [Concomitant]
     Active Substance: ASPIRIN\DIHYDROXYALUMINUM AMINOACETATE ANHYDROUS\MAGNESIUM CARBONATE
     Dosage: 1 TABLET ORALLY AFTER LUNCH
     Route: 048
     Dates: end: 20180307
  6. CRESTOR [Concomitant]
     Active Substance: ROSUVASTATIN CALCIUM
     Dosage: 10 MG, UNK
     Route: 048
     Dates: end: 20180307
  7. DIAMICRON [Concomitant]
     Active Substance: GLICLAZIDE
     Dosage: 60 MG, UNK
     Route: 048
  8. JANUMET [Suspect]
     Active Substance: METFORMIN HYDROCHLORIDE\SITAGLIPTIN PHOSPHATE
     Dosage: 1 TABLET PER DAY IN THE MORNING
     Route: 048
     Dates: start: 2016, end: 20180307

REACTIONS (8)
  - Feeling abnormal [Unknown]
  - Emotional disorder [Unknown]
  - Diabetes mellitus inadequate control [Recovering/Resolving]
  - Pyrexia [Unknown]
  - Inappropriate schedule of drug administration [Unknown]
  - Pain in extremity [Unknown]
  - Laboratory test abnormal [Unknown]
  - Adverse event [Unknown]

NARRATIVE: CASE EVENT DATE: 2016
